FAERS Safety Report 8045397-9 (Version None)
Quarter: 2012Q1

REPORT INFORMATION
  Report Type: 
  Country: None (occurrence: None)
  Receive Date: 20120113
  Receipt Date: 20120109
  Transmission Date: 20120608
  Serious: Yes (Other)
  Sender: FDA-Public Use
  Company Number: AU-PFIZER INC-2012006407

PATIENT
  Sex: Female

DRUGS (1)
  1. PYRALIN EN [Suspect]
     Dosage: 2000 MG PER DAY

REACTIONS (2)
  - INCONTINENCE [None]
  - CHROMATURIA [None]
